FAERS Safety Report 20718927 (Version 2)
Quarter: 2022Q2

REPORT INFORMATION
  Report Type: Report from Study
  Country: US (occurrence: US)
  Receive Date: 20220418
  Receipt Date: 20220512
  Transmission Date: 20220721
  Serious: Yes (Other)
  Sender: FDA-Public Use
  Company Number: US-BRISTOL-MYERS SQUIBB COMPANY-2022-017909

PATIENT
  Age: 65 Year
  Sex: Female
  Weight: 104.3 kg

DRUGS (1)
  1. REVLIMID [Suspect]
     Active Substance: LENALIDOMIDE
     Indication: Plasma cell myeloma
     Dosage: 10 MG DAILY
     Route: 048
     Dates: start: 20201209

REACTIONS (2)
  - Cataract [Unknown]
  - Meniere^s disease [Unknown]
